FAERS Safety Report 8811847 (Version 1)
Quarter: 2012Q4

REPORT INFORMATION
  Report Type: 
  Country: CN (occurrence: CN)
  Receive Date: 20120927
  Receipt Date: 20120927
  Transmission Date: 20130627
  Serious: Yes (Other)
  Sender: FDA-Public Use
  Company Number: CN-GLAXOSMITHKLINE-B0832880A

PATIENT
  Sex: Female
  Weight: 55 kg

DRUGS (1)
  1. LAMIVUDINE [Suspect]
     Indication: ANTIVIRAL TREATMENT
     Dosage: 1TAB Per day
     Route: 048
     Dates: start: 20091203, end: 20100308

REACTIONS (2)
  - Chronic hepatitis B [Recovering/Resolving]
  - Bone marrow failure [Recovering/Resolving]
